FAERS Safety Report 4635529-4 (Version None)
Quarter: 2005Q2

REPORT INFORMATION
  Report Type: 
  Country: None (occurrence: None)
  Receive Date: 20050413
  Receipt Date: 20050401
  Transmission Date: 20051028
  Serious: Yes (Death, Hospitalization)
  Sender: FDA-Public Use
  Company Number: 2005EU000551

PATIENT
  Age: 51 Year
  Sex: Male

DRUGS (3)
  1. PROGRAF [Suspect]
     Indication: LIVER TRANSPLANT
     Dosage: D
  2. PREDNISONE TAB [Suspect]
     Indication: LIVER TRANSPLANT
     Dosage: D, ORAL
     Route: 048
     Dates: end: 20041201
  3. ROCEPHIN [Suspect]
     Indication: NOCARDIOSIS
     Dosage: D, IV NOS
     Route: 042

REACTIONS (30)
  - ANAEMIA [None]
  - ASPERGILLOSIS [None]
  - BONE MARROW DEPRESSION [None]
  - CANDIDA SEPSIS [None]
  - CARDIOTOXICITY [None]
  - CONGESTIVE CARDIOMYOPATHY [None]
  - CYTOMEGALOVIRUS ANTIBODY POSITIVE [None]
  - DEPRESSED LEVEL OF CONSCIOUSNESS [None]
  - DRUG LEVEL INCREASED [None]
  - DRUG RESISTANCE [None]
  - EFFUSION [None]
  - GRAFT VERSUS HOST DISEASE [None]
  - LEFT VENTRICULAR FAILURE [None]
  - LIVER DISORDER [None]
  - LUNG DISORDER [None]
  - MALNUTRITION [None]
  - MITRAL VALVE INCOMPETENCE [None]
  - MYOCARDIAL INFARCTION [None]
  - MYOCARDITIS [None]
  - NEUROLOGICAL INFECTION [None]
  - NOCARDIOSIS [None]
  - NOSOCOMIAL INFECTION [None]
  - OVERDOSE [None]
  - PERICARDIAL EFFUSION [None]
  - PLEURAL EFFUSION [None]
  - PULMONARY OEDEMA [None]
  - PYREXIA [None]
  - RENAL FAILURE [None]
  - THROMBOCYTOPENIA [None]
  - TRANSFUSION REACTION [None]
